FAERS Safety Report 6187667-5 (Version None)
Quarter: 2009Q2

REPORT INFORMATION
  Report Type: 
  Country: None (occurrence: None)
  Receive Date: 20090511
  Receipt Date: 20090502
  Transmission Date: 20091009
  Serious: Yes (Other)
  Sender: FDA-Public Use
  Company Number: AE-2009-037

PATIENT
  Age: 57 Year
  Sex: Male
  Weight: 75 kg

DRUGS (4)
  1. METOPROLOL SUCCINATE [Suspect]
     Indication: HYPERTENSION
     Dosage: 100MG, ORAL
     Route: 048
     Dates: start: 20081005, end: 20081015
  2. PERINDOPRIL/INDAPAMIDE [Concomitant]
  3. FENOFIBRATE [Concomitant]
  4. PAROXETINE HCL [Concomitant]

REACTIONS (5)
  - CHEST DISCOMFORT [None]
  - CONDUCTION DISORDER [None]
  - HEADACHE [None]
  - HEART RATE INCREASED [None]
  - VERTIGO [None]
